FAERS Safety Report 5207737-5 (Version None)
Quarter: 2006Q4

REPORT INFORMATION
  Report Type: 
  Country: None (occurrence: None)
  Receive Date: 20061030
  Receipt Date: 20060922
  Transmission Date: 20070319
  Serious: No
  Sender: FDA-Public Use
  Company Number: 2006CT000748

PATIENT
  Age: 77 Year
  Sex: Female
  Weight: 79 kg

DRUGS (15)
  1. VENTAVIS [Suspect]
     Indication: PULMONARY HYPERTENSION
     Dosage: 5 UG; 6XD; INH
     Route: 055
     Dates: start: 20060711
  2. DIGOXIN [Concomitant]
  3. POTASSIUM ACETATE [Concomitant]
  4. HUMULIN R [Concomitant]
  5. IRON [Concomitant]
  6. CALCIUM [Concomitant]
  7. MAVIK [Concomitant]
  8. ASPIRIN [Concomitant]
  9. AMARYL [Concomitant]
  10. AVANDIA [Concomitant]
  11. SIMVASTATIN [Concomitant]
  12. FUROSEMIDE [Concomitant]
  13. SILDENAFIL CITRATE [Concomitant]
  14. TRACLEER [Concomitant]
  15. WARFARIN SODIUM [Concomitant]

REACTIONS (3)
  - ANXIETY [None]
  - EPISTAXIS [None]
  - INSOMNIA [None]
